FAERS Safety Report 12978183 (Version 1)
Quarter: 2016Q4

REPORT INFORMATION
  Report Type: Spontaneous
  Country: US (occurrence: US)
  Receive Date: 20161126
  Receipt Date: 20161126
  Transmission Date: 20170207
  Serious: Yes (Other)
  Sender: FDA-Public Use
  Company Number: None

PATIENT
  Age: 55 Year
  Sex: Male
  Weight: 85.5 kg

DRUGS (1)
  1. PREDNISONE. [Suspect]
     Active Substance: PREDNISONE
     Indication: INTERVERTEBRAL DISC PROTRUSION
     Dosage: ?          QUANTITY:30 TABLET(S);?
     Route: 048
     Dates: start: 20161119, end: 20161126

REACTIONS (2)
  - Gastrooesophageal reflux disease [None]
  - Abdominal pain upper [None]

NARRATIVE: CASE EVENT DATE: 20161126
